FAERS Safety Report 4808320-3 (Version None)
Quarter: 2005Q4

REPORT INFORMATION
  Report Type: 
  Country: None (occurrence: None)
  Receive Date: 20051021
  Receipt Date: 20051018
  Transmission Date: 20060501
  Serious: Yes (Hospitalization)
  Sender: FDA-Public Use
  Company Number: ENTC2005-0314

PATIENT
  Age: 75 Year
  Sex: Female

DRUGS (3)
  1. STALEVO 100 [Suspect]
     Indication: PARKINSON'S DISEASE
     Dosage: 600/150/800 MG; ORAL; 450/112.6/500; ORAL
     Route: 048
  2. DEROXAT [Suspect]
     Indication: DEPRESSION
     Dosage: ORAL
     Route: 048
  3. NORMISON [Suspect]
     Dosage: 4DF; ORAL
     Route: 048

REACTIONS (4)
  - DEPRESSION [None]
  - DRUG INTERACTION POTENTIATION [None]
  - DYSKINESIA [None]
  - TREATMENT NONCOMPLIANCE [None]
